FAERS Safety Report 8790760 (Version 4)
Quarter: 2013Q2

REPORT INFORMATION
  Report Type: Spontaneous
  Country: FR (occurrence: None)
  Receive Date: 20120907
  Receipt Date: 20130614
  Transmission Date: 20140414
  Serious: Yes (Hospitalization, Other)
  Sender: FDA-Public Use
  Company Number: 2012DEPFR00411

PATIENT
  Age: 64 Year
  Sex: Male
  Weight: 76 kg

DRUGS (15)
  1. DEPOCYT [Suspect]
     Indication: B-CELL LYMPHOMA RECURRENT
     Route: 037
     Dates: start: 20120820, end: 20120820
  2. IFOSFAMIDE [Suspect]
     Indication: DIFFUSE LARGE B-CELL LYMPHOMA
     Route: 042
     Dates: start: 20120820, end: 20120821
  3. ARACYTINE (CYTARABINE) [Concomitant]
  4. MESNA (MESNA) [Suspect]
     Indication: PROPHYLAXIS
     Route: 042
     Dates: start: 20120820, end: 20120821
  5. VP 16-213 (ETOPOSIDE) [Concomitant]
  6. DEPO-MEDROL (METHYLPREDNISOLONE ACETATE) [Concomitant]
  7. OXYCONTIN LP (OXYCODONE HYDROCHLORIDE) [Suspect]
     Indication: ANALGESIC INTERVENTION SUPPORTIVE THERAPY
     Route: 048
     Dates: start: 201205, end: 20120821
  8. PRIMPERAN (METOCLOPRAMIDE HYDROCHLORIDE) [Suspect]
     Indication: PROPHYLAXIS OF NAUSEA AND VOMITING
     Route: 042
     Dates: start: 20120820, end: 20120821
  9. ATARAX (HYDROXYZINE HYDROCHLORIDE) [Concomitant]
  10. EPREX (EPOETINE ALFA) [Concomitant]
  11. ZELITREX (VALACICLOVIR HYDROCHLORIDE) [Concomitant]
  12. BACTRIM [Concomitant]
  13. EFFERALGAN CODEINE (CODEINE PHOSPHATE, PARACETAMOL) [Concomitant]
  14. CYCLOPHOSPHAMIDE (CYCLOPHOSPHAMIDE) [Concomitant]
  15. DOXORUBICIN (DOXORUBICIN HYDROCHLORIDE) [Concomitant]

REACTIONS (8)
  - Encephalitis [None]
  - Confusional state [None]
  - Disorientation [None]
  - Dyskinesia [None]
  - Agitation [None]
  - Dizziness [None]
  - Headache [None]
  - Hallucination, visual [None]
